FAERS Safety Report 24074246 (Version 1)
Quarter: 2024Q3

REPORT INFORMATION
  Report Type: Report from Study
  Country: JP (occurrence: JP)
  Receive Date: 20240710
  Receipt Date: 20240710
  Transmission Date: 20241017
  Serious: No
  Sender: PIERRE FABRE MEDICAMENT
  Company Number: JP-maruho-EVC202400022PFM

PATIENT
  Age: 5 Year
  Sex: Male

DRUGS (2)
  1. PROPRANOLOL HYDROCHLORIDE [Suspect]
     Active Substance: PROPRANOLOL HYDROCHLORIDE
     Indication: Ventricular tachycardia
     Dosage: 2 MG/KG/ DAY
     Route: 048
  2. PROPRANOLOL HYDROCHLORIDE [Suspect]
     Active Substance: PROPRANOLOL HYDROCHLORIDE
     Indication: Long QT syndrome

REACTIONS (3)
  - Product administered to patient of inappropriate age [Unknown]
  - Off label use [Unknown]
  - Off label use [Unknown]
